FAERS Safety Report 5449962-4 (Version None)
Quarter: 2007Q3

REPORT INFORMATION
  Report Type: 
  Country: None (occurrence: None)
  Receive Date: 20070912
  Receipt Date: 20070831
  Transmission Date: 20080115
  Serious: Yes (Other)
  Sender: FDA-Public Use
  Company Number: FR-BAYER-200710492BFR

PATIENT
  Age: 30 Year
  Sex: Male

DRUGS (2)
  1. NEXAVAR [Suspect]
     Indication: RENAL CELL CARCINOMA STAGE UNSPECIFIED
     Route: 048
  2. SUTENT [Concomitant]
     Indication: RENAL CELL CARCINOMA STAGE UNSPECIFIED

REACTIONS (2)
  - EYE DISORDER [None]
  - RETINAL VEIN THROMBOSIS [None]
